FAERS Safety Report 15549962 (Version 2)
Quarter: 2019Q1

REPORT INFORMATION
  Report Type: Spontaneous
  Country: US (occurrence: US)
  Receive Date: 20181025
  Receipt Date: 20190104
  Transmission Date: 20190417
  Serious: No
  Sender: FDA-Public Use
  Company Number: US-TEVA-2018-US-968463

PATIENT
  Sex: Female

DRUGS (2)
  1. SORIATANE [Suspect]
     Active Substance: ACITRETIN
     Indication: PSORIASIS
     Dosage: 1 DOSAGE FORMS DAILY;
     Route: 065
  2. SORIATANE [Suspect]
     Active Substance: ACITRETIN
     Dosage: 2 DOSAGE FORMS DAILY;
     Route: 065

REACTIONS (2)
  - Intentional underdose [Unknown]
  - Psoriasis [Unknown]
